FAERS Safety Report 9969572 (Version 2)
Quarter: 2015Q4

REPORT INFORMATION
  Report Type: Report from Study
  Country: US (occurrence: US)
  Receive Date: 20140306
  Receipt Date: 20151103
  Transmission Date: 20160305
  Serious: Yes (Other)
  Sender: FDA-Public Use
  Company Number: US-ROCHE-1332088

PATIENT
  Age: 36 Year
  Sex: Female

DRUGS (5)
  1. LUCENTIS [Suspect]
     Active Substance: RANIBIZUMAB
     Indication: RETINAL OEDEMA
  2. LUCENTIS [Suspect]
     Active Substance: RANIBIZUMAB
     Indication: DIABETIC RETINAL OEDEMA
     Dosage: DOSE: 0.5 MG (VIAL STRENGTH: 0.05 ML) ?BOTH EYES.
     Route: 050
  3. PEPCID [Concomitant]
     Active Substance: FAMOTIDINE
  4. ZYMAR [Concomitant]
     Active Substance: GATIFLOXACIN
  5. AKTEN [Concomitant]
     Active Substance: LIDOCAINE HYDROCHLORIDE

REACTIONS (11)
  - Pelvic fracture [Unknown]
  - Visual acuity reduced [Unknown]
  - Blood glucose decreased [Unknown]
  - Nephropathy [Unknown]
  - Haematemesis [Unknown]
  - Dyspnoea [Unknown]
  - Vitreous haemorrhage [Unknown]
  - Vision blurred [Unknown]
  - Hypertension [Unknown]
  - Off label use [Unknown]
  - Cystoid macular oedema [Unknown]

NARRATIVE: CASE EVENT DATE: 20110527
